FAERS Safety Report 12555953 (Version 1)
Quarter: 2016Q3

REPORT INFORMATION
  Report Type: Spontaneous
  Country: US (occurrence: None)
  Receive Date: 20160713
  Receipt Date: 20160713
  Transmission Date: 20161109
  Serious: Yes (Hospitalization)
  Sender: FDA-Public Use
  Company Number: None

PATIENT
  Age: 79 Year
  Sex: Male

DRUGS (10)
  1. PREDNISONE. [Concomitant]
     Active Substance: PREDNISONE
  2. CLOPIDOGREL [Concomitant]
     Active Substance: CLOPIDOGREL BISULFATE
  3. AMIODARONE [Concomitant]
     Active Substance: AMIODARONE
  4. ATENOLOL. [Concomitant]
     Active Substance: ATENOLOL
  5. ASPIRIN. [Concomitant]
     Active Substance: ASPIRIN
  6. CALCIUM GLUC [Concomitant]
  7. ZYTIGA [Suspect]
     Active Substance: ABIRATERONE ACETATE
     Indication: PROSTATE CANCER
     Route: 048
     Dates: start: 20150926
  8. TAMSULOSIN [Concomitant]
     Active Substance: TAMSULOSIN
  9. ATORVASTATIN [Concomitant]
     Active Substance: ATORVASTATIN
  10. BICALUTAMIDE. [Concomitant]
     Active Substance: BICALUTAMIDE

REACTIONS (1)
  - Myocardial infarction [None]

NARRATIVE: CASE EVENT DATE: 20160706
